FAERS Safety Report 8468747 (Version 13)
Quarter: 2014Q1

REPORT INFORMATION
  Report Type: Spontaneous
  Country: US (occurrence: US)
  Receive Date: 20120320
  Receipt Date: 20140124
  Transmission Date: 20141002
  Serious: Yes (Hospitalization, Disabling)
  Sender: FDA-Public Use
  Company Number: US-ASTRAZENECA-2011SE41550

PATIENT
  Age: 53 Year
  Sex: Female

DRUGS (36)
  1. NEXIUM [Suspect]
     Indication: GASTROOESOPHAGEAL REFLUX DISEASE
     Route: 048
     Dates: start: 20030728
  2. NEXIUM [Suspect]
     Indication: GASTROOESOPHAGEAL REFLUX DISEASE
     Dosage: DAILY
     Route: 048
  3. NEXIUM [Suspect]
     Indication: GASTROOESOPHAGEAL REFLUX DISEASE
     Route: 048
     Dates: start: 200402, end: 200611
  4. NEXIUM [Suspect]
     Indication: GASTROOESOPHAGEAL REFLUX DISEASE
     Route: 048
     Dates: start: 20040210
  5. NEXIUM [Suspect]
     Indication: GASTROOESOPHAGEAL REFLUX DISEASE
     Route: 048
     Dates: start: 20040413
  6. NEXIUM [Suspect]
     Indication: GASTROOESOPHAGEAL REFLUX DISEASE
     Route: 048
     Dates: start: 20050524
  7. NEXIUM [Suspect]
     Indication: GASTROOESOPHAGEAL REFLUX DISEASE
     Route: 048
     Dates: start: 2012
  8. PEPTO-BISMOL  OTC [Concomitant]
     Dosage: AS NEEDED
  9. METFORMIN/GLUCOPHAGE XR [Concomitant]
     Indication: TYPE 2 DIABETES MELLITUS
     Dosage: TWO TABLETS DAILY WITH EVENING MEALS
     Route: 048
     Dates: start: 20121009
  10. AMLODIPINE [Concomitant]
     Indication: HYPERTENSION
  11. LISINOPRIL [Concomitant]
     Indication: HYPERTENSION
  12. SIMVASTATIN/ZOCOR [Concomitant]
     Indication: MEDICAL DIET
     Dates: start: 201210
  13. VICODON [Concomitant]
     Indication: PAIN
  14. VICODON [Concomitant]
     Indication: PAIN
     Dosage: PRN
     Dates: start: 20050524
  15. CRESTOR [Concomitant]
     Dates: start: 20100421
  16. CLONIDINE [Concomitant]
     Dosage: DAILY
     Dates: start: 20100421
  17. EXFORGE [Concomitant]
     Dosage: 10/160 DAILY
     Dates: start: 20100421
  18. KEFLEX [Concomitant]
     Dates: start: 20100421
  19. DECONAMINE SR [Concomitant]
     Dosage: ONE BED TIME
     Dates: start: 20100421
  20. PHENERGAN [Concomitant]
     Dosage: 10 MG BED TIME
     Dates: start: 20100421
  21. DIOVAN HCT [Concomitant]
     Dosage: 160-12
     Dates: start: 20040301
  22. DIOVAN HCT [Concomitant]
     Dosage: 160/2.5
     Dates: start: 20050524
  23. LIPITOR [Concomitant]
     Dates: start: 20040210
  24. LIPITOR [Concomitant]
     Dates: start: 20050524
  25. LIPITOR [Concomitant]
     Route: 048
     Dates: start: 20121009
  26. METAGLIP [Concomitant]
     Dosage: 5-500 MG
     Dates: start: 20040416
  27. ACTOS [Concomitant]
     Dates: start: 20040430
  28. ACTOS [Concomitant]
     Dates: start: 20050524
  29. BUMEX [Concomitant]
  30. PROCARDIA XL [Concomitant]
  31. ZETIA [Concomitant]
     Dates: start: 20050524
  32. MOBIC [Concomitant]
     Dosage: 15 MG PRN
     Dates: start: 20050524
  33. DEMADEX [Concomitant]
     Dosage: MWF
     Dates: end: 20050524
  34. PRILOSEC [Concomitant]
     Route: 048
     Dates: start: 20121009
  35. TOPROL XL [Concomitant]
     Route: 048
     Dates: start: 20121009
  36. ZESTORETIC/PRINZIDE [Concomitant]
     Dosage: 20-12.5 MG TWO TABLETS DAILY
     Route: 048
     Dates: start: 20121009

REACTIONS (8)
  - Humerus fracture [Unknown]
  - Fall [Unknown]
  - Upper limb fracture [Unknown]
  - Hypertension [Unknown]
  - Diabetes mellitus [Unknown]
  - Osteoporosis [Unknown]
  - Multiple fractures [Unknown]
  - Depression [Unknown]
